FAERS Safety Report 5118338-1 (Version None)
Quarter: 2006Q4

REPORT INFORMATION
  Report Type: 
  Country: None (occurrence: None)
  Receive Date: 20061002
  Receipt Date: 20060208
  Transmission Date: 20070319
  Serious: Yes (Hospitalization)
  Sender: FDA-Public Use
  Company Number: FR-BAYER-200610137BFR

PATIENT
  Age: 61 Year
  Sex: Male
  Weight: 51 kg

DRUGS (18)
  1. SORAFENIB [Suspect]
     Indication: RENAL CELL CARCINOMA STAGE UNSPECIFIED
     Dosage: TOTAL DAILY DOSE: 400 MG  UNIT DOSE: 200 MG
     Route: 048
     Dates: start: 20060105, end: 20060117
  2. SORAFENIB [Suspect]
     Dosage: TOTAL DAILY DOSE: 400 MG  UNIT DOSE: 200 MG
     Route: 048
     Dates: start: 20060309, end: 20060313
  3. LEXOMIL [Concomitant]
     Indication: ANXIETY
     Route: 048
     Dates: start: 19950101
  4. IXPRIM [Concomitant]
     Indication: PAIN
     Route: 048
     Dates: start: 20050126
  5. METEOSPASMYL [Concomitant]
     Indication: ABDOMINAL DISCOMFORT
     Route: 048
     Dates: start: 20051001
  6. BEDELIX [Concomitant]
     Indication: ABDOMINAL DISCOMFORT
     Route: 048
     Dates: start: 20051001
  7. MAALOX FAST BLOCKER [Concomitant]
     Indication: ABDOMINAL PAIN
     Route: 048
     Dates: start: 20051001
  8. LYTOS [Concomitant]
     Indication: OSTEOLYSIS
     Route: 048
  9. ACETAMINOPHEN [Concomitant]
     Indication: ABDOMINAL PAIN
     Route: 048
  10. HYDRACORT [Concomitant]
     Indication: RASH
     Route: 003
     Dates: start: 20060119
  11. KETODERM [Concomitant]
     Indication: RASH
     Route: 003
     Dates: start: 20060119
  12. CETORNAN [Concomitant]
     Indication: WEIGHT DECREASED
     Route: 048
     Dates: start: 20060116, end: 20060131
  13. DAKTARIN [Concomitant]
     Indication: ORAL CANDIDIASIS
     Route: 048
     Dates: start: 20060116, end: 20060130
  14. DIPROSONE [Concomitant]
     Indication: RASH
     Route: 003
     Dates: start: 20060116, end: 20060128
  15. LEVOCETIRIZINE [Concomitant]
     Indication: RASH
     Route: 003
     Dates: start: 20060116
  16. HYDROSOL POLYVITAMINE [Concomitant]
     Indication: ANOREXIA
     Route: 048
     Dates: start: 20060126
  17. ALPRAZOLAM [Concomitant]
     Indication: ANXIETY
     Route: 048
     Dates: start: 20060126
  18. TOPALGIC [Concomitant]
     Indication: PAIN
     Route: 048
     Dates: start: 20060126

REACTIONS (11)
  - ANOREXIA [None]
  - ASTHENIA [None]
  - DISEASE PROGRESSION [None]
  - DRY MOUTH [None]
  - ERYTHEMA [None]
  - FUNGAL INFECTION [None]
  - GENERAL PHYSICAL HEALTH DETERIORATION [None]
  - LIVER DISORDER [None]
  - MUCOSAL INFLAMMATION [None]
  - RASH [None]
  - STAPHYLOCOCCAL SEPSIS [None]
